FAERS Safety Report 7672976-0 (Version None)
Quarter: 2011Q3

REPORT INFORMATION
  Report Type: 
  Country: None (occurrence: None)
  Receive Date: 20110809
  Receipt Date: 20110801
  Transmission Date: 20111222
  Serious: Yes (Hospitalization)
  Sender: FDA-Public Use
  Company Number: NZ-B.I. PHARMACEUTICALS,INC./RIDGEFIELD-2011-AU-00644AU

PATIENT
  Age: 67 Year
  Sex: Female
  Weight: 69 kg

DRUGS (3)
  1. PRADAXA [Suspect]
     Indication: ATRIAL FIBRILLATION
     Dates: start: 20110705
  2. WARFARIN [Concomitant]
     Indication: ATRIAL FIBRILLATION
     Dates: end: 20110704
  3. ASPIRIN [Concomitant]

REACTIONS (4)
  - SUBDURAL HAEMORRHAGE [None]
  - FEMUR FRACTURE [None]
  - COMA SCALE ABNORMAL [None]
  - FALL [None]
